FAERS Safety Report 7981581-8 (Version None)
Quarter: 2011Q4

REPORT INFORMATION
  Report Type: 
  Country: None (occurrence: None)
  Receive Date: 20111215
  Receipt Date: 20111201
  Transmission Date: 20120403
  Serious: Yes (Death, Other)
  Sender: FDA-Public Use
  Company Number: GB-CELGENEUS-167-21880-11120305

PATIENT
  Age: 68 Year
  Sex: Male

DRUGS (6)
  1. ENOXAPARIN SODIUM [Concomitant]
     Dosage: 40 MILLIGRAM
     Route: 065
     Dates: end: 20100902
  2. DEXAMETHASONE [Concomitant]
     Route: 065
  3. REVLIMID [Suspect]
     Indication: MYELOMA RECURRENCE
     Dosage: 25 MILLIGRAM
     Route: 048
     Dates: start: 20091001, end: 20100902
  4. FINASTERIDE [Concomitant]
     Route: 065
  5. GABAPENTIN [Suspect]
     Dosage: 1800 MILLIGRAM
     Route: 048
     Dates: start: 20070701, end: 20110210
  6. MORPHINE SULFATE [Concomitant]
     Route: 065

REACTIONS (4)
  - ACUTE MYELOID LEUKAEMIA [None]
  - THROMBOCYTOPENIA [None]
  - MYELODYSPLASTIC SYNDROME [None]
  - PETECHIAE [None]
